FAERS Safety Report 4363131-0 (Version None)
Quarter: 2004Q2

REPORT INFORMATION
  Report Type: 
  Country: None (occurrence: None)
  Receive Date: 20040519
  Receipt Date: 20040507
  Transmission Date: 20050107
  Serious: No
  Sender: FDA-Public Use
  Company Number: 04P-143-0260133-00

PATIENT
  Age: 34 Year
  Sex: Female
  Weight: 97 kg

DRUGS (2)
  1. KALETRA [Suspect]
     Indication: HIV INFECTION
     Dosage: 3 CAPSULE, 2 IN 1 D, PER ORAL
     Route: 048
     Dates: start: 20040304
  2. DUOVIR [Concomitant]

REACTIONS (6)
  - ABDOMINAL DISTENSION [None]
  - ACNE [None]
  - DIARRHOEA [None]
  - DIZZINESS [None]
  - RASH [None]
  - VISION BLURRED [None]
